FAERS Safety Report 7360855-8 (Version None)
Quarter: 2011Q1

REPORT INFORMATION
  Report Type: 
  Country: None (occurrence: None)
  Receive Date: 20110318
  Receipt Date: 20110315
  Transmission Date: 20110831
  Serious: Yes (Hospitalization, Other)
  Sender: FDA-Public Use
  Company Number: CA-US-EMD SERONO, INC.-230215K09CAN

PATIENT
  Sex: Female

DRUGS (11)
  1. SYNTHROID [Concomitant]
  2. VESICARE [Concomitant]
  3. TYLENOL-500 [Concomitant]
     Indication: PAIN
  4. REBIF [Suspect]
     Indication: RELAPSING-REMITTING MULTIPLE SCLEROSIS
     Dosage: MULTIDOSE
     Dates: start: 20050927
  5. CYTOMEL [Concomitant]
  6. PANCRELIPASE [Concomitant]
  7. BUSCOPAN [Concomitant]
  8. DIAZIDE [Concomitant]
  9. ATAVAN [ATIVAN] [Concomitant]
  10. DOMPERIDONE [Concomitant]
  11. ADVIL LIQUI-GELS [Concomitant]
     Indication: PAIN

REACTIONS (15)
  - DYSPEPSIA [None]
  - INJECTION SITE ERYTHEMA [None]
  - MULTIPLE SCLEROSIS RELAPSE [None]
  - GASTROINTESTINAL DISORDER [None]
  - URINE ODOUR ABNORMAL [None]
  - PANCREATITIS [None]
  - GASTROINTESTINAL INJURY [None]
  - ABDOMINAL DISTENSION [None]
  - SINUSITIS [None]
  - STRESS [None]
  - PARAESTHESIA [None]
  - CHOLECYSTECTOMY [None]
  - FATIGUE [None]
  - DUODENAL SCARRING [None]
  - NAUSEA [None]
